FAERS Safety Report 5775269-1 (Version None)
Quarter: 2008Q2

REPORT INFORMATION
  Report Type: 
  Country: None (occurrence: None)
  Receive Date: 20080617
  Receipt Date: 20080605
  Transmission Date: 20081010
  Serious: Yes (Death)
  Sender: FDA-Public Use
  Company Number: GB-ROCHE-557047

PATIENT
  Sex: Male
  Weight: 85 kg

DRUGS (9)
  1. CAPECITABINE [Suspect]
     Indication: GASTRIC CANCER
     Route: 048
     Dates: start: 20080227, end: 20080330
  2. EPIRUBICIN [Suspect]
     Indication: GASTRIC CANCER
     Route: 042
     Dates: start: 20080227, end: 20080330
  3. CISPLATIN [Suspect]
     Indication: GASTRIC CANCER
     Route: 042
     Dates: start: 20080227, end: 20080330
  4. ZOPICLONE [Concomitant]
     Route: 048
     Dates: start: 20080218, end: 20080330
  5. OXYBUTYNIN CHLORIDE [Concomitant]
     Route: 048
     Dates: start: 20030212, end: 20080330
  6. LANSOPRAZOLE [Concomitant]
     Route: 048
     Dates: start: 20080325, end: 20080330
  7. FERROUS SULFATE TAB [Concomitant]
     Route: 048
     Dates: start: 20030103, end: 20080330
  8. SERETIDE [Concomitant]
     Route: 050
     Dates: start: 20020827, end: 20080330
  9. SERETIDE [Concomitant]
     Route: 050
     Dates: start: 20020827, end: 20080330

REACTIONS (4)
  - CARDIAC ARREST [None]
  - CLOSTRIDIUM DIFFICILE TOXIN TEST POSITIVE [None]
  - NEUTROPENIA [None]
  - NEUTROPENIC SEPSIS [None]
